FAERS Safety Report 25769063 (Version 1)
Quarter: 2025Q3

REPORT INFORMATION
  Report Type: Spontaneous
  Country: EU (occurrence: EU)
  Receive Date: 20250905
  Receipt Date: 20250905
  Transmission Date: 20251020
  Serious: Yes (Death, Other)
  Sender: AMGEN
  Company Number: EU-AMGEN-ESPSP2025173383

PATIENT

DRUGS (2)
  1. BEVACIZUMAB [Suspect]
     Active Substance: BEVACIZUMAB
     Indication: Hepatocellular carcinoma
     Route: 065
  2. ATEZOLIZUMAB [Concomitant]
     Active Substance: ATEZOLIZUMAB
     Indication: Hepatocellular carcinoma
     Route: 065

REACTIONS (11)
  - Death [Fatal]
  - Colitis [Unknown]
  - Myocarditis [Unknown]
  - Encephalitis [Unknown]
  - Hypertension [Unknown]
  - Disease progression [Unknown]
  - Proteinuria [Unknown]
  - Diarrhoea [Unknown]
  - Adverse event [Unknown]
  - Unevaluable event [Unknown]
  - Off label use [Unknown]
